FAERS Safety Report 5146250-0 (Version None)
Quarter: 2006Q4

REPORT INFORMATION
  Report Type: 
  Country: None (occurrence: None)
  Receive Date: 20061102
  Receipt Date: 20061020
  Transmission Date: 20070319
  Serious: Yes (Other)
  Sender: FDA-Public Use
  Company Number: CHNY2006DE02841

PATIENT
  Age: 33 Year
  Sex: Female
  Weight: 60 kg

DRUGS (1)
  1. NICOTINE [Suspect]
     Indication: SMOKING CESSATION THERAPY
     Dosage: 21 MG, QD, TRANSDERMAL
     Route: 062
     Dates: start: 20061004, end: 20061005

REACTIONS (15)
  - ASTHENIA [None]
  - FEELING HOT [None]
  - HYPOAESTHESIA [None]
  - LIP OEDEMA [None]
  - MUSCLE SPASMS [None]
  - MUSCULAR WEAKNESS [None]
  - MYALGIA [None]
  - OEDEMA MUCOSAL [None]
  - PAIN IN EXTREMITY [None]
  - PRURITUS [None]
  - RASH [None]
  - SKIN REACTION [None]
  - SKIN SWELLING [None]
  - SWELLING FACE [None]
  - URTICARIA [None]
